FAERS Safety Report 6990664-0 (Version None)
Quarter: 2010Q3

REPORT INFORMATION
  Report Type: 
  Country: None (occurrence: None)
  Receive Date: 20100916
  Receipt Date: 20090730
  Transmission Date: 20110219
  Serious: Yes (Hospitalization, Other)
  Sender: FDA-Public Use
  Company Number: HQWYE086926OCT04

PATIENT
  Sex: Female

DRUGS (4)
  1. PREMARIN [Suspect]
  2. PREMPRO [Suspect]
  3. MEDROXYPROGESTERONE [Suspect]
  4. PROVERA [Suspect]

REACTIONS (1)
  - BREAST CANCER [None]
